FAERS Safety Report 5755210-8 (Version None)
Quarter: 2008Q2

REPORT INFORMATION
  Report Type: 
  Country: None (occurrence: None)
  Receive Date: 20080602
  Receipt Date: 20080521
  Transmission Date: 20081010
  Serious: Yes (Hospitalization)
  Sender: FDA-Public Use
  Company Number: IT-NOVOPROD-275708

PATIENT
  Sex: Male
  Weight: 77 kg

DRUGS (3)
  1. LEVEMIR [Suspect]
     Indication: TYPE 2 DIABETES MELLITUS
     Dosage: 25 IU, QD
     Dates: start: 20071120
  2. WARFARIN SODIUM [Concomitant]
  3. ENALAPRIL MALEATE [Concomitant]
     Dosage: 20 MG, QD

REACTIONS (3)
  - DYSPNOEA [None]
  - HEPATIC STEATOSIS [None]
  - PYREXIA [None]
